FAERS Safety Report 17085615 (Version 2)
Quarter: 2019Q4

REPORT INFORMATION
  Report Type: Report from Study
  Country: DE (occurrence: DE)
  Receive Date: 20191128
  Receipt Date: 20191204
  Transmission Date: 20200122
  Serious: Yes (Other)
  Sender: FDA-Public Use
  Company Number: DE-EMD SERONO-9123697

PATIENT
  Age: 35 Year
  Sex: Female
  Weight: 62 kg

DRUGS (2)
  1. L-THYROXIN [Concomitant]
     Active Substance: LEVOTHYROXINE SODIUM
     Indication: AUTOIMMUNE THYROIDITIS
     Route: 048
  2. REBIF [Suspect]
     Active Substance: INTERFERON BETA-1A
     Indication: RELAPSING-REMITTING MULTIPLE SCLEROSIS
     Route: 058
     Dates: start: 200906

REACTIONS (23)
  - Aspartate aminotransferase increased [Unknown]
  - Blood pressure increased [Unknown]
  - Hepatic steatosis [Unknown]
  - Contusion [Unknown]
  - Multiple sclerosis relapse [Unknown]
  - Hypergammaglobulinaemia [Not Recovered/Not Resolved]
  - Blood glucose increased [Unknown]
  - Plasmacytoma [Unknown]
  - Spinal disorder [Unknown]
  - Monocyte count increased [Unknown]
  - Back pain [Not Recovered/Not Resolved]
  - Colitis ulcerative [Recovering/Resolving]
  - Haemorrhagic diathesis [Unknown]
  - Alanine aminotransferase increased [Unknown]
  - Blood albumin decreased [Unknown]
  - Ovarian cyst [Unknown]
  - Bone marrow disorder [Not Recovered/Not Resolved]
  - Pyelonephritis [Unknown]
  - Blood potassium increased [Unknown]
  - Asthenia [Not Recovered/Not Resolved]
  - Spinal osteoarthritis [Unknown]
  - Muscular weakness [Not Recovered/Not Resolved]
  - Light chain analysis increased [Unknown]

NARRATIVE: CASE EVENT DATE: 2009
